FAERS Safety Report 7630538-5 (Version None)
Quarter: 2011Q3

REPORT INFORMATION
  Report Type: 
  Country: None (occurrence: None)
  Receive Date: 20110722
  Receipt Date: 20110712
  Transmission Date: 20111222
  Serious: Yes (Other)
  Sender: FDA-Public Use
  Company Number: PHHY2011US29364

PATIENT
  Sex: Male

DRUGS (3)
  1. GILENYA [Suspect]
     Dosage: 0.5 MG, QD
     Route: 048
     Dates: start: 20110523, end: 20110525
  2. GILENYA [Suspect]
     Indication: MULTIPLE SCLEROSIS
     Dosage: 0.5 MG, QD
     Route: 048
     Dates: start: 20110315
  3. GILENYA [Suspect]
     Dosage: 0.5 MG, QD
     Route: 048
     Dates: start: 20110325, end: 20110401

REACTIONS (24)
  - DIARRHOEA [None]
  - GAIT DISTURBANCE [None]
  - PAIN [None]
  - EYE PAIN [None]
  - FALL [None]
  - GASTROINTESTINAL VIRAL INFECTION [None]
  - DIZZINESS [None]
  - CONSTIPATION [None]
  - VOMITING [None]
  - MUSCULAR WEAKNESS [None]
  - FATIGUE [None]
  - BACK PAIN [None]
  - BLOOD PRESSURE FLUCTUATION [None]
  - UHTHOFF'S PHENOMENON [None]
  - HEADACHE [None]
  - MALAISE [None]
  - PARAESTHESIA [None]
  - PERONEAL NERVE PALSY [None]
  - PYREXIA [None]
  - SENSATION OF HEAVINESS [None]
  - DIPLOPIA [None]
  - GASTROOESOPHAGEAL REFLUX DISEASE [None]
  - BRADYCARDIA [None]
  - VISION BLURRED [None]
